FAERS Safety Report 9214640 (Version 1)
Quarter: 2013Q1

REPORT INFORMATION
  Report Type: Spontaneous
  Country: US (occurrence: None)
  Receive Date: 20120827
  Receipt Date: 20120827
  Transmission Date: 20140127
  Serious: Yes (Other)
  Sender: FDA-Public Use
  Company Number: 353713

PATIENT
  Age: 46 Year
  Sex: Male
  Weight: 118.8 kg

DRUGS (8)
  1. VICTOZA (LIRAGLUTIDE) SOLUTION FOR INJECTION, 6MG/ML [Suspect]
     Indication: TYPE 2 DIABETES MELLITUS
     Route: 058
     Dates: start: 20100817, end: 20120423
  2. LANTUS (INSULIN GLARGINE) [Concomitant]
  3. HUMALOG (INSULIN LISPRO) [Concomitant]
  4. METFORMIN (METFORMIN) [Concomitant]
  5. LISINOPRIL (LISINOPRIL) [Concomitant]
  6. TOPROL (METROPROLOL SUCCINATE) [Concomitant]
  7. LIPITOR (ATORVASTATIN CALCIUM) [Concomitant]
  8. ASPIRIN (ACETYLSALICYLIC ACID) [Concomitant]

REACTIONS (1)
  - Pancreatitis [None]
